FAERS Safety Report 9406001 (Version 9)
Quarter: 2016Q4

REPORT INFORMATION
  Report Type: Spontaneous
  Country: CA (occurrence: CA)
  Receive Date: 20130717
  Receipt Date: 20161206
  Transmission Date: 20170207
  Serious: Yes (Hospitalization, Other)
  Sender: FDA-Public Use
  Company Number: CA-GLAXOSMITHKLINE-A1031792A

PATIENT
  Age: 58 Year
  Sex: Female
  Weight: 65 kg

DRUGS (4)
  1. CELLCEPT [Suspect]
     Active Substance: MYCOPHENOLATE MOFETIL\MYCOPHENOLATE MOFETIL HYDROCHLORIDE
     Indication: PRODUCT USED FOR UNKNOWN INDICATION
     Route: 065
  2. BENLYSTA [Suspect]
     Active Substance: BELIMUMAB
     Indication: SYSTEMIC LUPUS ERYTHEMATOSUS
     Dosage: 0, 2, 4 WKS EVERY 4 WEEKS
     Route: 042
     Dates: start: 20130221
  3. PREDNISONE. [Concomitant]
     Active Substance: PREDNISONE
  4. PLAQUENIL [Concomitant]
     Active Substance: HYDROXYCHLOROQUINE SULFATE

REACTIONS (13)
  - Progressive multifocal leukoencephalopathy [Recovered/Resolved with Sequelae]
  - Apathy [Unknown]
  - Neurological decompensation [Unknown]
  - White matter lesion [Unknown]
  - Cognitive disorder [Unknown]
  - Leukopenia [Unknown]
  - Lymphopenia [Unknown]
  - Infection [Unknown]
  - Executive dysfunction [Unknown]
  - Aphasia [Unknown]
  - Asthenia [Unknown]
  - JC virus infection [Recovered/Resolved with Sequelae]
  - White matter lesion [Unknown]

NARRATIVE: CASE EVENT DATE: 201305
